FAERS Safety Report 7725739-1 (Version None)
Quarter: 2011Q3

REPORT INFORMATION
  Report Type: 
  Country: None (occurrence: None)
  Receive Date: 20110902
  Receipt Date: 20110823
  Transmission Date: 20111222
  Serious: Yes (Hospitalization)
  Sender: FDA-Public Use
  Company Number: US-US-EMD SERONO, INC.-7079090

PATIENT
  Sex: Female

DRUGS (4)
  1. NAPROXEN (ALEVE) [Concomitant]
     Indication: PREMEDICATION
  2. ANTIDEPRESSANT [Concomitant]
  3. REBIF [Suspect]
     Indication: PRODUCT USED FOR UNKNOWN INDICATION
     Route: 058
     Dates: start: 20080822
  4. PAIN MEDICATION [Concomitant]

REACTIONS (3)
  - KNEE ARTHROPLASTY [None]
  - INJECTION SITE PAIN [None]
  - SEROTONIN SYNDROME [None]
